FAERS Safety Report 7201214-8 (Version None)
Quarter: 2010Q4

REPORT INFORMATION
  Report Type: 
  Country: None (occurrence: None)
  Receive Date: 20101227
  Receipt Date: 20101227
  Transmission Date: 20110411
  Serious: Yes (Other)
  Sender: FDA-Public Use
  Company Number: None

PATIENT
  Age: 25 Year
  Sex: Female
  Weight: 49.8957 kg

DRUGS (1)
  1. SAVELLA [Suspect]
     Indication: FIBROMYALGIA
     Dosage: 25 MG 2X DAILY PO
     Route: 048
     Dates: start: 20101219, end: 20101223

REACTIONS (11)
  - ASTHENIA [None]
  - DECREASED APPETITE [None]
  - DEPRESSION [None]
  - DYSKINESIA [None]
  - FATIGUE [None]
  - HALLUCINATION, VISUAL [None]
  - HYPOAESTHESIA [None]
  - NIGHTMARE [None]
  - PARALYSIS [None]
  - TREMOR [None]
  - WEIGHT DECREASED [None]
